FAERS Safety Report 4935412-0 (Version None)
Quarter: 2006Q1

REPORT INFORMATION
  Report Type: 
  Country: None (occurrence: None)
  Receive Date: 20060307
  Receipt Date: 20060103
  Transmission Date: 20060701
  Serious: Yes (Disabling, Congenital Anomaly)
  Sender: FDA-Public Use
  Company Number: FR-GLAXOSMITHKLINE-B0406278A

PATIENT
  Sex: Female
  Weight: 4 kg

DRUGS (2)
  1. DEROXAT [Suspect]
     Indication: BIPOLAR I DISORDER
     Dosage: 20MG PER DAY
     Dates: start: 20041020, end: 20050820
  2. PRAZEPAM [Suspect]
     Indication: BIPOLAR I DISORDER
     Dosage: 10MG PER DAY
     Dates: start: 20041020, end: 20050801

REACTIONS (7)
  - CONGENITAL HAND MALFORMATION [None]
  - CONGENITAL NAIL DISORDER [None]
  - DRUG EXPOSURE DURING PREGNANCY [None]
  - FACIAL DYSMORPHISM [None]
  - HAEMANGIOMA [None]
  - SKULL MALFORMATION [None]
  - TOE DEFORMITY [None]
